FAERS Safety Report 12683201 (Version 1)
Quarter: 2016Q3

REPORT INFORMATION
  Report Type: Spontaneous
  Country: JP (occurrence: JP)
  Receive Date: 20160825
  Receipt Date: 20160825
  Transmission Date: 20161109
  Serious: Yes (Other)
  Sender: FDA-Public Use
  Company Number: PHJP2016JP023492

PATIENT
  Sex: Female

DRUGS (1)
  1. TEGRETOL [Suspect]
     Active Substance: CARBAMAZEPINE
     Indication: PRODUCT USED FOR UNKNOWN INDICATION
     Dosage: UNK
     Route: 048

REACTIONS (6)
  - Dermatitis [Unknown]
  - Hypersensitivity [Unknown]
  - Shared psychotic disorder [Unknown]
  - Seasonal allergy [Unknown]
  - Rash [Unknown]
  - Haemorrhage subcutaneous [Unknown]
